FAERS Safety Report 4879145-8 (Version None)
Quarter: 2006Q1

REPORT INFORMATION
  Report Type: 
  Country: None (occurrence: None)
  Receive Date: 20060112
  Receipt Date: 20060102
  Transmission Date: 20060701
  Serious: Yes (Hospitalization)
  Sender: FDA-Public Use
  Company Number: FR-ROCHE-430549

PATIENT
  Age: 50 Year
  Sex: Male
  Weight: 74 kg

DRUGS (3)
  1. RIVOTRIL [Suspect]
     Route: 048
     Dates: start: 20051128, end: 20051130
  2. DEPAKOTE [Suspect]
     Route: 048
     Dates: start: 20051128
  3. ZYPREXA [Suspect]
     Route: 048
     Dates: start: 20051128

REACTIONS (3)
  - CONFUSIONAL STATE [None]
  - DISORIENTATION [None]
  - HALLUCINATION, VISUAL [None]
